FAERS Safety Report 8314362-6 (Version None)
Quarter: 2012Q2

REPORT INFORMATION
  Report Type: 
  Country: None (occurrence: None)
  Receive Date: 20120426
  Receipt Date: 20110808
  Transmission Date: 20120825
  Serious: Yes (Other)
  Sender: FDA-Public Use
  Company Number: US-TEVA-US024004

PATIENT
  Sex: Female

DRUGS (9)
  1. TRAZODONE HCL [Concomitant]
     Indication: PSYCHOTIC DISORDER
  2. KLONOPIN [Concomitant]
     Indication: PSYCHOTIC DISORDER
  3. RISPERDAL [Concomitant]
     Indication: BIPOLAR DISORDER
     Dosage: 3 MILLIGRAM;
     Route: 065
  4. RISPERDAL [Concomitant]
     Indication: PSYCHOTIC DISORDER
  5. PROVIGIL [Suspect]
     Indication: SOMNOLENCE
     Dosage: 100 MILLIGRAM;
     Route: 048
     Dates: start: 20080605, end: 20080611
  6. PROVIGIL [Suspect]
     Indication: BIPOLAR DISORDER
  7. TRAZODONE HCL [Concomitant]
     Indication: BIPOLAR DISORDER
     Dosage: 75 MILLIGRAM;
     Route: 065
  8. PROVIGIL [Suspect]
     Indication: PSYCHOTIC DISORDER
  9. KLONOPIN [Concomitant]
     Indication: BIPOLAR DISORDER
     Dosage: 2 MILLIGRAM;
     Route: 065

REACTIONS (1)
  - PSYCHOTIC DISORDER [None]
